FAERS Safety Report 11290129 (Version 3)
Quarter: 2015Q3

REPORT INFORMATION
  Report Type: Report from Study
  Country: US (occurrence: US)
  Receive Date: 20150721
  Receipt Date: 20150914
  Transmission Date: 20151125
  Serious: Yes (Other)
  Sender: FDA-Public Use
  Company Number: US-GILEAD-2015-0162616

PATIENT
  Age: 62 Year
  Sex: Male
  Weight: 64.4 kg

DRUGS (4)
  1. AMBRISENTAN [Suspect]
     Active Substance: AMBRISENTAN
     Indication: LEFT VENTRICULAR DYSFUNCTION
  2. AMBRISENTAN [Suspect]
     Active Substance: AMBRISENTAN
     Indication: PULMONARY ARTERIAL HYPERTENSION
     Dosage: 5 MG, UNK
     Route: 065
     Dates: start: 20150529
  3. AMBRISENTAN [Suspect]
     Active Substance: AMBRISENTAN
     Indication: CARDIAC FAILURE CONGESTIVE
  4. ADCIRCA [Suspect]
     Active Substance: TADALAFIL
     Indication: PRODUCT USED FOR UNKNOWN INDICATION
     Route: 065

REACTIONS (8)
  - Hypotension [Unknown]
  - Swelling [Unknown]
  - Cardiac failure [Unknown]
  - Localised intraabdominal fluid collection [Unknown]
  - Abdominal discomfort [Unknown]
  - Weight decreased [Unknown]
  - Abdominal distension [Unknown]
  - Arrhythmia [Unknown]
